FAERS Safety Report 20121011 (Version 1)
Quarter: 2021Q4

REPORT INFORMATION
  Report Type: Other
  Country: None (occurrence: ES)
  Receive Date: 20211127
  Receipt Date: 20211127
  Transmission Date: 20220303
  Serious: Yes (Hospitalization, Other)
  Sender: FDA-Public Use
  Company Number: ES-Changzhou Pharmaceutical Factory-2122383

PATIENT
  Age: 89 Year
  Sex: Male

DRUGS (14)
  1. ROSUVASTATIN CALCIUM [Suspect]
     Active Substance: ROSUVASTATIN CALCIUM
     Indication: Product used for unknown indication
     Route: 065
  2. LEVOTHYROXINE [Concomitant]
     Active Substance: LEVOTHYROXINE
     Route: 065
  3. CANDESARTAN [Concomitant]
     Active Substance: CANDESARTAN
     Route: 065
  4. HYDROCHLOROTHIAZIDE [Concomitant]
     Active Substance: HYDROCHLOROTHIAZIDE
     Route: 065
  5. ASPIRIN [Concomitant]
     Active Substance: ASPIRIN
     Route: 065
  6. TRIPTORELIN [Concomitant]
     Active Substance: TRIPTORELIN
     Route: 065
  7. OMEPRAZOLE [Concomitant]
     Active Substance: OMEPRAZOLE
     Route: 065
  8. CALCIFEDIOL [Concomitant]
     Active Substance: CALCIFEDIOL
     Route: 065
  9. CALCIUM CARBONATE [Concomitant]
     Active Substance: CALCIUM CARBONATE
     Route: 065
  10. BISOPROLOL. [Concomitant]
     Active Substance: BISOPROLOL FUMARATE
     Route: 065
  11. CETIRIZINE [Concomitant]
     Active Substance: CETIRIZINE HYDROCHLORIDE
     Route: 065
  12. PREDNISONE [Concomitant]
     Active Substance: PREDNISONE
     Route: 065
  13. ABIRATERONE. [Interacting]
     Active Substance: ABIRATERONE ACETATE
     Route: 048
  14. DENOSUMAB [Concomitant]
     Active Substance: DENOSUMAB
     Route: 065

REACTIONS (2)
  - Acute kidney injury [Recovered/Resolved]
  - Drug interaction [Recovered/Resolved]
